FAERS Safety Report 8291259-1 (Version None)
Quarter: 2012Q2

REPORT INFORMATION
  Report Type: 
  Country: None (occurrence: None)
  Receive Date: 20120417
  Receipt Date: 20120409
  Transmission Date: 20120825
  Serious: Yes (Other)
  Sender: FDA-Public Use
  Company Number: US-BAYER-2012-034615

PATIENT
  Sex: Female

DRUGS (2)
  1. YASMIN [Suspect]
     Dosage: UNK
     Dates: start: 20031208, end: 20050115
  2. YAZ [Suspect]
     Dosage: UNK
     Dates: start: 20070924, end: 20100504

REACTIONS (1)
  - GALLBLADDER DISORDER [None]
